FAERS Safety Report 24218369 (Version 1)
Quarter: 2024Q3

REPORT INFORMATION
  Report Type: Report from Study
  Country: US (occurrence: None)
  Receive Date: 20240816
  Receipt Date: 20240816
  Transmission Date: 20241016
  Serious: Yes (Other)
  Sender: ASTRAZENECA
  Company Number: 2022A239995

PATIENT

DRUGS (1)
  1. CALQUENCE [Interacting]
     Active Substance: ACALABRUTINIB
     Indication: Chronic lymphocytic leukaemia
     Route: 048

REACTIONS (7)
  - Toxicity to various agents [Unknown]
  - Pulmonary toxicity [Unknown]
  - Malignant neoplasm progression [Unknown]
  - Drug interaction [Unknown]
  - Anaemia [Unknown]
  - Fatigue [Unknown]
  - Drug ineffective [Unknown]
